FAERS Safety Report 20041618 (Version 1)
Quarter: 2021Q4

REPORT INFORMATION
  Report Type: Spontaneous
  Country: MX (occurrence: MX)
  Receive Date: 20211108
  Receipt Date: 20211108
  Transmission Date: 20220304
  Serious: Yes (Hospitalization, Other)
  Sender: FDA-Public Use
  Company Number: MX-ABBVIE-21K-107-4150891-00

PATIENT
  Sex: Male

DRUGS (1)
  1. VENETOCLAX [Suspect]
     Active Substance: VENETOCLAX
     Indication: Chronic lymphocytic leukaemia
     Route: 048

REACTIONS (6)
  - Haemolytic anaemia [Unknown]
  - Chronic lymphocytic leukaemia recurrent [Unknown]
  - Ocular icterus [Unknown]
  - Splenomegaly [Unknown]
  - Lithiasis [Unknown]
  - Hepatomegaly [Unknown]
